FAERS Safety Report 11792995 (Version 1)
Quarter: 2015Q4

REPORT INFORMATION
  Report Type: Spontaneous
  Country: US (occurrence: None)
  Receive Date: 20151130
  Receipt Date: 20151130
  Transmission Date: 20160305
  Serious: Yes (Hospitalization)
  Sender: FDA-Public Use
  Company Number: 2015US-106843

PATIENT
  Age: 55 Year
  Sex: Female

DRUGS (3)
  1. PREDNISONE (PREDNISONE) UNKNOWN [Suspect]
     Active Substance: PREDNISONE
     Indication: CONNECTIVE TISSUE DISORDER
  2. PREDNISONE (PREDNISONE) UNKNOWN [Suspect]
     Active Substance: PREDNISONE
     Indication: INTERSTITIAL LUNG DISEASE
  3. PREDNISONE (PREDNISONE) UNKNOWN [Suspect]
     Active Substance: PREDNISONE
     Indication: WHEEZING

REACTIONS (5)
  - Nocardiosis [None]
  - Condition aggravated [None]
  - Bronchiectasis [None]
  - Stenotrophomonas infection [None]
  - Pseudomonas infection [None]
